FAERS Safety Report 20489415 (Version 1)
Quarter: 2022Q1

REPORT INFORMATION
  Report Type: Spontaneous
  Country: US (occurrence: None)
  Receive Date: 20220217
  Receipt Date: 20220217
  Transmission Date: 20220424
  Serious: Yes (Hospitalization)
  Sender: FDA-Public Use
  Company Number: None

PATIENT
  Age: 55 Year
  Sex: Female

DRUGS (1)
  1. CAPECITABINE [Suspect]
     Active Substance: CAPECITABINE
     Dosage: 1000 MG BID ORAL?
     Route: 048
     Dates: start: 202201

REACTIONS (8)
  - Hyponatraemia [None]
  - Acute kidney injury [None]
  - Nausea [None]
  - Dry mouth [None]
  - Therapy interrupted [None]
  - Skin hyperpigmentation [None]
  - Palmar-plantar erythrodysaesthesia syndrome [None]
  - Gait disturbance [None]

NARRATIVE: CASE EVENT DATE: 20220131
